FAERS Safety Report 6693010-5 (Version None)
Quarter: 2010Q2

REPORT INFORMATION
  Report Type: 
  Country: None (occurrence: None)
  Receive Date: 20100422
  Receipt Date: 20100415
  Transmission Date: 20101027
  Serious: Yes (Hospitalization, Other)
  Sender: FDA-Public Use
  Company Number: TR-ABBOTT-10P-161-0638993-00

PATIENT
  Sex: Male
  Weight: 65 kg

DRUGS (1)
  1. TARKA [Suspect]
     Indication: HYPERTENSION
     Dosage: 1X2/180MG
     Route: 048

REACTIONS (2)
  - EXTRADURAL HAEMATOMA [None]
  - HAEMORRHAGE [None]
